FAERS Safety Report 19490440 (Version 1)
Quarter: 2021Q3

REPORT INFORMATION
  Report Type: Spontaneous
  Country: US (occurrence: US)
  Receive Date: 20210705
  Receipt Date: 20210705
  Transmission Date: 20211014
  Serious: No
  Sender: FDA-Public Use
  Company Number: US-ELI_LILLY_AND_COMPANY-US202107001396

PATIENT
  Sex: Male

DRUGS (18)
  1. HUMALOG [Suspect]
     Active Substance: INSULIN LISPRO
     Dosage: 13 U, UNKNOWN(SUGAR ABOVE 100)
     Route: 058
     Dates: start: 202012
  2. HUMALOG [Suspect]
     Active Substance: INSULIN LISPRO
     Dosage: 13 U, UNKNOWN(SUGAR ABOVE 100)
     Route: 058
  3. ENALAPRIL [Concomitant]
     Active Substance: ENALAPRIL
     Indication: TYPE 2 DIABETES MELLITUS
     Dosage: 10 MG, DAILY
  4. HUMALOG [Suspect]
     Active Substance: INSULIN LISPRO
     Dosage: 12 U, UNKNOWN(SUGAR WAS 80?100)
     Route: 058
  5. NOVOLOG [Concomitant]
     Active Substance: INSULIN ASPART
     Indication: TYPE 2 DIABETES MELLITUS
  6. HUMALOG [Suspect]
     Active Substance: INSULIN LISPRO
     Indication: TYPE 2 DIABETES MELLITUS
     Dosage: 12 U, UNKNOWN(SUGAR WAS 80?100)
     Route: 058
     Dates: start: 202012
  7. HUMALOG [Suspect]
     Active Substance: INSULIN LISPRO
     Indication: TYPE 2 DIABETES MELLITUS
     Dosage: 12 U, UNKNOWN(SUGAR WAS 80?100)
     Route: 058
     Dates: start: 202012
  8. HUMALOG [Suspect]
     Active Substance: INSULIN LISPRO
     Dosage: 14 U, UNKNOWN(SUGAR ABOVE 200)
     Route: 058
  9. HUMALOG [Suspect]
     Active Substance: INSULIN LISPRO
     Dosage: 16 U, UNKNOWN(SUGAR 250?300)
     Route: 058
     Dates: start: 202012
  10. HUMALOG [Suspect]
     Active Substance: INSULIN LISPRO
     Dosage: 12 U, UNKNOWN(SUGAR WAS 80?100)
     Route: 058
  11. HUMALOG [Suspect]
     Active Substance: INSULIN LISPRO
     Dosage: 14 U, UNKNOWN(SUGAR ABOVE 200)
     Route: 058
  12. HUMALOG [Suspect]
     Active Substance: INSULIN LISPRO
     Dosage: 16 U, UNKNOWN(SUGAR 250?300)
     Route: 058
  13. HUMALOG [Suspect]
     Active Substance: INSULIN LISPRO
     Dosage: 13 U, UNKNOWN(SUGAR ABOVE 100)
     Route: 058
     Dates: start: 202012
  14. HUMALOG [Suspect]
     Active Substance: INSULIN LISPRO
     Dosage: 14 U, UNKNOWN(SUGAR ABOVE 200)
     Route: 058
     Dates: start: 202012
  15. HUMALOG [Suspect]
     Active Substance: INSULIN LISPRO
     Dosage: 16 U, UNKNOWN(SUGAR 250?300)
     Route: 058
  16. HUMALOG [Suspect]
     Active Substance: INSULIN LISPRO
     Dosage: 14 U, UNKNOWN(SUGAR ABOVE 200)
     Route: 058
     Dates: start: 202012
  17. HUMALOG [Suspect]
     Active Substance: INSULIN LISPRO
     Dosage: 16 U, UNKNOWN(SUGAR 250?300)
     Route: 058
     Dates: start: 202012
  18. HUMALOG [Suspect]
     Active Substance: INSULIN LISPRO
     Dosage: 13 U, UNKNOWN(SUGAR ABOVE 100)
     Route: 058

REACTIONS (1)
  - Blood glucose increased [Unknown]
